FAERS Safety Report 17768112 (Version 1)
Quarter: 2020Q2

REPORT INFORMATION
  Report Type: Spontaneous
  Country: US (occurrence: US)
  Receive Date: 20200511
  Receipt Date: 20200511
  Transmission Date: 20200714
  Serious: No
  Sender: FDA-Public Use
  Company Number: US-PERSON AND COVEY-2083684

PATIENT
  Age: 27 Year
  Sex: Male
  Weight: 81.82 kg

DRUGS (1)
  1. DHS ZINC [Suspect]
     Active Substance: PYRITHIONE ZINC
     Indication: DANDRUFF
     Route: 003

REACTIONS (1)
  - Psoriasis [Unknown]
